FAERS Safety Report 22220599 (Version 6)
Quarter: 2023Q2

REPORT INFORMATION
  Report Type: Report from Study
  Country: DE (occurrence: DE)
  Receive Date: 20230417
  Receipt Date: 20230616
  Transmission Date: 20230722
  Serious: Yes (Hospitalization)
  Sender: FDA-Public Use
  Company Number: DE-AMGEN-DEUCT2023064397

PATIENT
  Age: 41 Year
  Sex: Male
  Weight: 74 kg

DRUGS (11)
  1. SOTORASIB [Suspect]
     Active Substance: SOTORASIB
     Indication: Colorectal cancer metastatic
     Dosage: 960 MILLIGRAM
     Route: 048
     Dates: start: 20221215
  2. PANITUMUMAB [Suspect]
     Active Substance: PANITUMUMAB
     Indication: Colorectal cancer metastatic
     Dosage: 390 MILLIGRAM
     Route: 042
     Dates: start: 20221215
  3. CHOLESTYRAMINE [Concomitant]
     Active Substance: CHOLESTYRAMINE
     Dosage: 0.5 MICROGRAM
     Route: 048
     Dates: start: 20221225, end: 20230502
  4. METROGEL [Concomitant]
     Active Substance: METRONIDAZOLE
     Dosage: 50 GRAM
     Route: 061
     Dates: start: 20221225, end: 20230502
  5. MINOCYCLINE [Concomitant]
     Active Substance: MINOCYCLINE HYDROCHLORIDE
     Dosage: 50 MILLIGRAM
     Route: 048
     Dates: start: 20221225, end: 20230502
  6. LOPERAMIDE [Concomitant]
     Active Substance: LOPERAMIDE
     Dosage: 2 MILLIGRAM
     Route: 048
     Dates: start: 20230110, end: 20230502
  7. ONDANSETRON [Concomitant]
     Active Substance: ONDANSETRON
     Dosage: 8 MILLIGRAM
     Route: 048
     Dates: start: 20230111, end: 20230502
  8. ABSTRAL [Concomitant]
     Active Substance: FENTANYL CITRATE
     Dosage: 200 MILLIGRAM
     Route: 048
     Dates: start: 20230216, end: 20230502
  9. PREGABALIN [Concomitant]
     Active Substance: PREGABALIN
     Dosage: 150 MILLIGRAM
     Route: 048
     Dates: start: 20230224, end: 20230502
  10. FENTANYL [Concomitant]
     Active Substance: FENTANYL
     Dosage: 75 MICROGRAM
     Route: 062
     Dates: start: 20230224, end: 20230502
  11. IRON [Concomitant]
     Active Substance: IRON
     Dosage: 62.5 MILLIGRAM
     Route: 042
     Dates: start: 20230404, end: 20230404

REACTIONS (1)
  - Muscle spasms [Not Recovered/Not Resolved]

NARRATIVE: CASE EVENT DATE: 20230413
